APPROVED DRUG PRODUCT: ALBUTEROL SULFATE
Active Ingredient: ALBUTEROL SULFATE
Strength: EQ 0.5% BASE
Dosage Form/Route: SOLUTION;INHALATION
Application: A074543 | Product #001 | TE Code: AN
Applicant: SENTISS AG
Approved: Jan 15, 1998 | RLD: No | RS: No | Type: RX